FAERS Safety Report 16640002 (Version 1)
Quarter: 2019Q3

REPORT INFORMATION
  Report Type: Spontaneous
  Country: US (occurrence: US)
  Receive Date: 20190727
  Receipt Date: 20190727
  Transmission Date: 20191004
  Serious: No
  Sender: FDA-Public Use
  Company Number: US-AMGEN-USASP2019116863

PATIENT
  Age: 54 Year
  Sex: Male

DRUGS (1)
  1. SENSIPAR [Suspect]
     Active Substance: CINACALCET HYDROCHLORIDE
     Indication: HYPERPARATHYROIDISM
     Dosage: 90 MILLIGRAM, 3 TIMES/WK WITH DIALYSIS
     Route: 065
     Dates: start: 201808

REACTIONS (2)
  - Nausea [Unknown]
  - Diarrhoea [Unknown]
